FAERS Safety Report 7234224-5 (Version None)
Quarter: 2011Q1

REPORT INFORMATION
  Report Type: 
  Country: None (occurrence: None)
  Receive Date: 20110119
  Receipt Date: 20100331
  Transmission Date: 20110831
  Serious: Yes (Other)
  Sender: FDA-Public Use
  Company Number: US-PFIZER INC-2010031369

PATIENT
  Sex: Male
  Weight: 100 kg

DRUGS (12)
  1. SEROQUEL [Concomitant]
     Indication: MENTAL DISORDER
     Dosage: 150 MG, 2X/DAY
  2. GEODON [Concomitant]
     Indication: BIPOLAR DISORDER
     Dosage: 60 MG, DAILY
  3. GEODON [Concomitant]
     Indication: HORMONE LEVEL ABNORMAL
  4. CRESTOR [Concomitant]
     Indication: BLOOD CHOLESTEROL INCREASED
     Dosage: 10 MG, DAILY
  5. CHANTIX [Suspect]
     Dosage: 1 MG, UNK
     Dates: start: 20110106
  6. CHANTIX [Suspect]
     Indication: SMOKING CESSATION THERAPY
     Dosage: 0.5 MG, DAILY
     Route: 048
     Dates: start: 20081001
  7. DIOVAN [Concomitant]
     Indication: HYPERTENSION
     Dosage: 10 MG, UNK
  8. CHANTIX [Suspect]
     Dosage: 0.5 MG, DAILY
     Route: 048
     Dates: start: 20100308
  9. ASA [Concomitant]
     Dosage: UNK
  10. LUNESTA [Concomitant]
     Indication: BIPOLAR DISORDER
     Dosage: 3 MG, DAILY
  11. ACETYLSALICYLIC ACID [Concomitant]
     Dosage: UNK
  12. AMLODIPINE/OLMESARTAN MEDOXOMIL [Concomitant]
     Indication: HYPERTENSION
     Dosage: UNK

REACTIONS (4)
  - MEDICATION ERROR [None]
  - AGITATION [None]
  - PSYCHOMOTOR HYPERACTIVITY [None]
  - INCORRECT DRUG ADMINISTRATION DURATION [None]
